FAERS Safety Report 11063927 (Version 1)
Quarter: 2015Q2

REPORT INFORMATION
  Report Type: Spontaneous
  Country: ZA (occurrence: ZA)
  Receive Date: 20150424
  Receipt Date: 20150424
  Transmission Date: 20150821
  Serious: Yes (Hospitalization)
  Sender: FDA-Public Use
  Company Number: ZA-ASTELLAS-2015EU006065

PATIENT
  Age: 58 Year
  Sex: Female

DRUGS (13)
  1. GLUCOPHAGE [Concomitant]
     Active Substance: METFORMIN HYDROCHLORIDE
     Indication: DIABETES MELLITUS
     Route: 048
     Dates: start: 201411
  2. FOLIC ACID. [Concomitant]
     Active Substance: FOLIC ACID
     Indication: PROPHYLAXIS
     Dosage: 2 DF, DAILY
     Route: 048
     Dates: start: 2006
  3. CO-IRBEWIN [Concomitant]
     Indication: HYPERTENSION
     Dosage: 150/12.5 MG, UNKNOWN FREQ.
     Route: 048
     Dates: start: 2011
  4. PURESIS [Concomitant]
     Active Substance: FUROSEMIDE
     Indication: HYPERTENSION
     Route: 048
     Dates: start: 2008
  5. VESICARE [Suspect]
     Active Substance: SOLIFENACIN SUCCINATE
     Indication: HYPERTONIC BLADDER
     Dosage: 10 MG, DAILY
     Route: 048
     Dates: start: 2011
  6. SLOW K [Concomitant]
     Active Substance: POTASSIUM CHLORIDE
     Indication: MINERAL SUPPLEMENTATION
     Route: 048
     Dates: start: 2008
  7. ARAVA [Concomitant]
     Active Substance: LEFLUNOMIDE
     Indication: RHEUMATIC FEVER
     Route: 048
     Dates: start: 2010
  8. VENLOR [Concomitant]
     Indication: ANTIDEPRESSANT THERAPY
     Dosage: 2 DF, DAILY
     Route: 048
     Dates: start: 2006
  9. ALTOSEC                            /00661201/ [Concomitant]
     Indication: DUODENAL ULCER
     Dosage: UNK UNK, EVERY 12 HOURS
     Route: 048
     Dates: start: 2011
  10. SALAZOPRIN [Concomitant]
     Indication: RHEUMATIC DISORDER
     Route: 048
     Dates: start: 2006
  11. PREDNISONE. [Concomitant]
     Active Substance: PREDNISONE
     Indication: NEPHROTIC SYNDROME
  12. PREDNISONE. [Concomitant]
     Active Substance: PREDNISONE
     Indication: RHEUMATOID ARTHRITIS
     Dosage: 10 MG, DAILY
     Route: 048
     Dates: start: 2010
  13. PREMARIN [Concomitant]
     Active Substance: ESTROGENS, CONJUGATED
     Indication: HORMONE REPLACEMENT THERAPY
     Dosage: 1.25 MG, DAILY
     Route: 048
     Dates: start: 2011

REACTIONS (1)
  - Diabetic ulcer [Recovering/Resolving]

NARRATIVE: CASE EVENT DATE: 20141211
